FAERS Safety Report 17241238 (Version 1)
Quarter: 2020Q1

REPORT INFORMATION
  Report Type: Spontaneous
  Country: US (occurrence: US)
  Receive Date: 20200106
  Receipt Date: 20200106
  Transmission Date: 20200409
  Serious: Yes (Life-Threatening)
  Sender: FDA-Public Use
  Company Number: None

PATIENT
  Age: 42 Year
  Sex: Female
  Weight: 90.9 kg

DRUGS (7)
  1. ULTRAM [Suspect]
     Active Substance: TRAMADOL HYDROCHLORIDE
     Indication: BACK PAIN
     Dates: start: 20191231, end: 20200105
  2. PREDNISONE. [Concomitant]
     Active Substance: PREDNISONE
  3. DECADRON [Concomitant]
     Active Substance: DEXAMETHASONE
  4. AMOXIL [Concomitant]
     Active Substance: AMOXICILLIN
  5. HYDROXYZINE [Concomitant]
     Active Substance: HYDROXYZINE HYDROCHLORIDE
  6. COUGH MEDS [Concomitant]
  7. HYTONE CREAM [Concomitant]

REACTIONS (5)
  - Ocular discomfort [None]
  - Dyspnoea [None]
  - Rash [None]
  - Cough [None]
  - Fatigue [None]

NARRATIVE: CASE EVENT DATE: 20200105
